FAERS Safety Report 8378170-2 (Version None)
Quarter: 2012Q2

REPORT INFORMATION
  Report Type: 
  Country: None (occurrence: None)
  Receive Date: 20120522
  Receipt Date: 20120516
  Transmission Date: 20120825
  Serious: No
  Sender: FDA-Public Use
  Company Number: US-PFIZER INC-2012119403

PATIENT
  Sex: Female

DRUGS (1)
  1. ALSUMA [Suspect]
     Indication: MIGRAINE
     Dosage: 6 MG, ONCE
     Dates: start: 20120201, end: 20120201

REACTIONS (2)
  - MALAISE [None]
  - CHEST PAIN [None]
